FAERS Safety Report 9916299 (Version 2)
Quarter: 2014Q2

REPORT INFORMATION
  Report Type: Spontaneous
  Country: GB (occurrence: GB)
  Receive Date: 20140221
  Receipt Date: 20140421
  Transmission Date: 20141212
  Serious: Yes (Other)
  Sender: FDA-Public Use
  Company Number: GB-JNJFOC-20140210344

PATIENT
  Age: 49 Year
  Sex: Male
  Weight: 95 kg

DRUGS (2)
  1. XARELTO [Suspect]
     Indication: PULMONARY EMBOLISM
     Route: 048
     Dates: start: 20131105
  2. TADALAFIL [Concomitant]
     Route: 048

REACTIONS (1)
  - Lower respiratory tract infection [Recovered/Resolved]
